FAERS Safety Report 17974283 (Version 1)
Quarter: 2020Q3

REPORT INFORMATION
  Report Type: Spontaneous
  Country: US (occurrence: US)
  Receive Date: 20200702
  Receipt Date: 20200702
  Transmission Date: 20201103
  Serious: Yes (Other)
  Sender: FDA-Public Use
  Company Number: US-PFIZER INC-2020252848

PATIENT
  Age: 36 Year
  Sex: Female
  Weight: 56.7 kg

DRUGS (2)
  1. MEKTOVI [Suspect]
     Active Substance: BINIMETINIB
     Indication: BRAIN NEOPLASM
     Dosage: 45 MG, 2X/DAY (15 MG TABLETS, TAKE 3 TABLETS TWICE DAILY BY MOUTH)
     Route: 048
     Dates: start: 2020
  2. BRAFTOVI [Suspect]
     Active Substance: ENCORAFENIB
     Indication: BRAIN NEOPLASM
     Dosage: 450 MG, 1X/DAY (75 MG, 6 CAPSULES ONCE DAILY BY MOUTH)
     Route: 048
     Dates: start: 2020

REACTIONS (3)
  - COVID-19 [Unknown]
  - Off label use [Unknown]
  - Product use in unapproved indication [Unknown]

NARRATIVE: CASE EVENT DATE: 2020
